FAERS Safety Report 17124320 (Version 1)
Quarter: 2019Q4

REPORT INFORMATION
  Report Type: Spontaneous
  Country: DE (occurrence: DE)
  Receive Date: 20191206
  Receipt Date: 20191206
  Transmission Date: 20200122
  Serious: Yes (Other)
  Sender: FDA-Public Use
  Company Number: DE-BRISTOL-MYERS SQUIBB COMPANY-BMS-2019-114265

PATIENT

DRUGS (2)
  1. OPDIVO [Suspect]
     Active Substance: NIVOLUMAB
     Indication: PRODUCT USED FOR UNKNOWN INDICATION
     Dosage: 2 DOSES
     Route: 065
  2. YERVOY [Suspect]
     Active Substance: IPILIMUMAB
     Indication: PRODUCT USED FOR UNKNOWN INDICATION
     Dosage: 2 DOSES
     Route: 065

REACTIONS (6)
  - Pericardial effusion [Unknown]
  - Autoimmune myocarditis [Unknown]
  - Autoimmune pericarditis [Unknown]
  - Respiration abnormal [Unknown]
  - Erythema multiforme [Unknown]
  - Cardiomegaly [Unknown]
